FAERS Safety Report 8933593 (Version 1)
Quarter: 2012Q4

REPORT INFORMATION
  Report Type: 
  Country: US (occurrence: US)
  Receive Date: 20121128
  Receipt Date: 20121128
  Transmission Date: 20130627
  Serious: No
  Sender: FDA-Public Use
  Company Number: US-ABBOTT-12P-163-0997546-00

PATIENT
  Sex: Male
  Weight: 113.5 kg

DRUGS (1)
  1. ANDROGEL [Suspect]
     Indication: BLOOD TESTOSTERONE DECREASED
     Dosage: One pump total daily. Applies to upper arms.
     Dates: start: 201209

REACTIONS (1)
  - Drug ineffective [Unknown]
